FAERS Safety Report 9385097 (Version 1)
Quarter: 2013Q3

REPORT INFORMATION
  Report Type: Spontaneous
  Country: US (occurrence: US)
  Receive Date: 20130705
  Receipt Date: 20130705
  Transmission Date: 20140515
  Serious: Yes (Other)
  Sender: FDA-Public Use
  Company Number: PHEH2013US014238

PATIENT
  Age: 13 Year
  Sex: Male

DRUGS (1)
  1. TRILEPTAL [Suspect]

REACTIONS (12)
  - Blister [Unknown]
  - Eye swelling [Unknown]
  - Eye irritation [Unknown]
  - Eye pain [Unknown]
  - Scar [Unknown]
  - Skin discolouration [Unknown]
  - Eye disorder [Unknown]
  - Genital disorder male [Unknown]
  - Inflammation [Unknown]
  - Rash erythematous [Unknown]
  - Swelling [Unknown]
  - Anxiety [Unknown]
